FAERS Safety Report 11610656 (Version 1)
Quarter: 2015Q4

REPORT INFORMATION
  Report Type: Spontaneous
  Country: US (occurrence: None)
  Receive Date: 20151007
  Receipt Date: 20151007
  Transmission Date: 20160304
  Serious: Yes (Life-Threatening, Disabling)
  Sender: FDA-Public Use
  Company Number: None

PATIENT
  Age: 38 Year
  Sex: Male
  Weight: 117.94 kg

DRUGS (7)
  1. DEPAKOTE [Suspect]
     Active Substance: DIVALPROEX SODIUM
     Indication: MENTAL DISORDER
     Dosage: 2 ONCE DAILY
     Route: 048
     Dates: start: 20051023, end: 20151005
  2. MULTI VITAMIN [Concomitant]
     Active Substance: VITAMINS
  3. SERTRALINE [Concomitant]
     Active Substance: SERTRALINE HYDROCHLORIDE
  4. DEPAKOTE [Concomitant]
     Active Substance: DIVALPROEX SODIUM
  5. TRAZODONE [Concomitant]
     Active Substance: TRAZODONE HYDROCHLORIDE
  6. KRILL OIL SUPPLEMENT [Concomitant]
  7. CLOZARIL [Concomitant]
     Active Substance: CLOZAPINE

REACTIONS (6)
  - Blood cholesterol increased [None]
  - Glucose tolerance impaired [None]
  - Obesity [None]
  - Weight increased [None]
  - Arthritis [None]
  - Dyspnoea [None]

NARRATIVE: CASE EVENT DATE: 20150925
